FAERS Safety Report 25642708 (Version 1)
Quarter: 2025Q3

REPORT INFORMATION
  Report Type: Spontaneous
  Country: EU (occurrence: EU)
  Receive Date: 20250805
  Receipt Date: 20250805
  Transmission Date: 20251021
  Serious: Yes (Other)
  Sender: ROCHE
  Company Number: None

PATIENT
  Age: 7 Month
  Sex: Female
  Weight: 0.6 kg

DRUGS (1)
  1. RISDIPLAM [Suspect]
     Active Substance: RISDIPLAM
     Indication: Spinal muscular atrophy
     Route: 048
     Dates: start: 20250523

REACTIONS (2)
  - Vomiting [Not Recovered/Not Resolved]
  - Weight gain poor [Not Recovered/Not Resolved]

NARRATIVE: CASE EVENT DATE: 20250526
